FAERS Safety Report 12846837 (Version 6)
Quarter: 2018Q4

REPORT INFORMATION
  Report Type: Spontaneous
  Country: CA (occurrence: CA)
  Receive Date: 20161014
  Receipt Date: 20181213
  Transmission Date: 20190204
  Serious: Yes (Other)
  Sender: FDA-Public Use
  Company Number: CA-ORION CORPORATION ORION PHARMA-TREX2016-1950

PATIENT
  Age: 67 Year
  Sex: Female

DRUGS (4)
  1. TRAZODONE [Concomitant]
     Active Substance: TRAZODONE HYDROCHLORIDE
     Route: 065
  2. NOVO-GESIC [Concomitant]
     Route: 065
  3. METHOTREXATE (TRADE NAME UNKNOWN) [Suspect]
     Active Substance: METHOTREXATE
     Indication: RHEUMATOID ARTHRITIS
     Route: 065
     Dates: start: 200403, end: 201606
  4. FOLVITE [Concomitant]
     Active Substance: FOLIC ACID
     Route: 065

REACTIONS (6)
  - Neutropenia [Unknown]
  - Infection [Unknown]
  - Monocytosis [Unknown]
  - Drug intolerance [Unknown]
  - Nausea [Unknown]
  - Nail infection [Unknown]

NARRATIVE: CASE EVENT DATE: 2016
